FAERS Safety Report 8784886 (Version 1)
Quarter: 2012Q4

REPORT INFORMATION
  Report Type: Spontaneous
  Country: US (occurrence: None)
  Receive Date: 20120831
  Receipt Date: 20120831
  Transmission Date: 20130627
  Serious: Yes (Life-Threatening, Other)
  Sender: FDA-Public Use
  Company Number: 2012P1055087

PATIENT
  Age: 38 Year

DRUGS (1)
  1. FENTANYL [Suspect]
     Route: 048

REACTIONS (4)
  - Intentional drug misuse [None]
  - Overdose [None]
  - Depressed level of consciousness [None]
  - Respiratory depression [None]
